FAERS Safety Report 7180096-7 (Version None)
Quarter: 2010Q4

REPORT INFORMATION
  Report Type: 
  Country: None (occurrence: None)
  Receive Date: 20101209
  Receipt Date: 20101123
  Transmission Date: 20110411
  Serious: Yes (Other)
  Sender: FDA-Public Use
  Company Number: 20100500

PATIENT
  Age: 42 Year
  Sex: Female

DRUGS (5)
  1. CYANOCOBALAMIN [Suspect]
     Indication: VITAMIN B12 DEFICIENCY
     Dosage: 1000 MCG MONTHLY INTRAMUSCULAR
     Route: 030
     Dates: start: 20100809, end: 20101012
  2. BENICAR [Concomitant]
  3. DIAMOX [Concomitant]
  4. ANTIHISTAMINES, UNSPECIFIED [Concomitant]
  5. UNSPECIFIED STEROIDS [Concomitant]

REACTIONS (2)
  - ALLERGY TO METALS [None]
  - DRUG HYPERSENSITIVITY [None]
